FAERS Safety Report 5315333-4 (Version None)
Quarter: 2007Q2

REPORT INFORMATION
  Report Type: 
  Country: None (occurrence: None)
  Receive Date: 20070502
  Receipt Date: 20070423
  Transmission Date: 20071010
  Serious: Yes (Other)
  Sender: FDA-Public Use
  Company Number: US-PFIZER INC-2007034283

PATIENT

DRUGS (2)
  1. SERTRALINE [Suspect]
     Route: 064
  2. RISPERIDONE [Suspect]
     Route: 064

REACTIONS (6)
  - DRUG EXPOSURE DURING PREGNANCY [None]
  - DRUG WITHDRAWAL SYNDROME NEONATAL [None]
  - IRRITABILITY [None]
  - LARYNGOMALACIA [None]
  - MUSCLE SPASMS [None]
  - TREMOR [None]
